FAERS Safety Report 7421964-8 (Version None)
Quarter: 2011Q2

REPORT INFORMATION
  Report Type: 
  Country: None (occurrence: None)
  Receive Date: 20110418
  Receipt Date: 20110408
  Transmission Date: 20111010
  Serious: Yes (Other)
  Sender: FDA-Public Use
  Company Number: US-ASTRAZENECA-2011SE20293

PATIENT
  Age: 71 Year
  Sex: Female
  Weight: 65.8 kg

DRUGS (1)
  1. CRESTOR [Suspect]
     Route: 048

REACTIONS (4)
  - CAROTID ARTERY OCCLUSION [None]
  - FACIAL WASTING [None]
  - WEIGHT INCREASED [None]
  - FASCIITIS [None]
